FAERS Safety Report 9711426 (Version 1)
Quarter: 2013Q4

REPORT INFORMATION
  Report Type: Spontaneous
  Country: US (occurrence: US)
  Receive Date: 20131126
  Receipt Date: 20131126
  Transmission Date: 20140711
  Serious: No
  Sender: FDA-Public Use
  Company Number: US-BRISTOL-MYERS SQUIBB COMPANY-19390756

PATIENT
  Age: 71 Year
  Sex: Female
  Weight: 58.96 kg

DRUGS (14)
  1. BYETTA PEN DISPOSABLE [Suspect]
     Indication: DIABETES MELLITUS
     Route: 058
  2. LOSARTAN [Concomitant]
  3. TRIAMTERENE + HCTZ [Concomitant]
     Dosage: 1DF:25/37.5MG
  4. SIMVASTATIN [Concomitant]
  5. COUMADIN [Concomitant]
     Dosage: 1DF:2.5-5MG
  6. OMEPRAZOLE [Concomitant]
  7. MAGNESIUM [Concomitant]
  8. CORAL CALCIUM [Concomitant]
  9. VITAMIN B12 [Concomitant]
  10. VITAMIN D3 [Concomitant]
     Dosage: 1DF:2000 UNIT NOS
  11. BIOTIN [Concomitant]
  12. OMEGA 3 FATTY ACID [Concomitant]
  13. PROPAFENONE [Concomitant]
  14. COQ10 [Concomitant]

REACTIONS (2)
  - Nausea [Recovered/Resolved]
  - Product quality issue [Unknown]
